FAERS Safety Report 7634690-7 (Version None)
Quarter: 2011Q3

REPORT INFORMATION
  Report Type: 
  Country: None (occurrence: None)
  Receive Date: 20110725
  Receipt Date: 20090523
  Transmission Date: 20111222
  Serious: Yes (Death, Other)
  Sender: FDA-Public Use
  Company Number: US-BAYER-200921152NA

PATIENT
  Age: 77 Year
  Sex: Female
  Weight: 78.005 kg

DRUGS (19)
  1. ALTACE [Concomitant]
     Dosage: 5 MG, UNK
     Route: 048
     Dates: end: 20061003
  2. COREG [Concomitant]
     Dosage: 6.25 MG, BID
     Route: 048
     Dates: end: 20061003
  3. LIPITOR [Concomitant]
     Dosage: 20 MG, UNK
     Route: 048
     Dates: end: 20061003
  4. HEPARIN [Concomitant]
     Dosage: 450 TOTAL
     Route: 042
     Dates: start: 20061004
  5. PLASMA [Concomitant]
     Dosage: 4 U, UNK
     Route: 042
  6. TRICOR [Concomitant]
     Dosage: 145 MG, UNK
     Route: 048
     Dates: end: 20061003
  7. VECURONIUM BROMIDE [Concomitant]
  8. RED BLOOD CELLS [Concomitant]
     Dosage: 6 U, UNK
     Route: 042
  9. TRASYLOL [Suspect]
     Indication: CORONARY ARTERY BYPASS
  10. VANCOMYCIN [Concomitant]
  11. TRASYLOL [Suspect]
     Indication: PRODUCT USED FOR UNKNOWN INDICATION
     Route: 042
     Dates: start: 20061004
  12. NORVASC [Concomitant]
     Dosage: 5 MG, UNK
     Route: 048
     Dates: end: 20061003
  13. PAXIL [Concomitant]
     Dosage: 20 MG, UNK
     Route: 048
     Dates: end: 20061003
  14. TRASYLOL [Suspect]
     Indication: AORTIC ANEURYSM REPAIR
  15. TRASYLOL [Suspect]
     Indication: COX-MAZE PROCEDURE
  16. TORSEMIDE [Concomitant]
     Dosage: 20 MG, UNK
     Route: 048
     Dates: end: 20061003
  17. LANOXIN [Concomitant]
     Dosage: 0.25 MG, UNK
     Route: 048
     Dates: end: 20061003
  18. CEFUROXIME [Concomitant]
  19. PLATELETS [Concomitant]
     Dosage: 2 U, UNK
     Route: 042

REACTIONS (11)
  - EMOTIONAL DISTRESS [None]
  - PAIN [None]
  - DEATH [None]
  - MULTI-ORGAN FAILURE [None]
  - RENAL FAILURE [None]
  - RENAL IMPAIRMENT [None]
  - ANXIETY [None]
  - UNEVALUABLE EVENT [None]
  - FEAR [None]
  - RENAL INJURY [None]
  - STRESS [None]
